FAERS Safety Report 18717263 (Version 1)
Quarter: 2021Q1

REPORT INFORMATION
  Report Type: Spontaneous
  Country: GB (occurrence: GB)
  Receive Date: 20210108
  Receipt Date: 20210108
  Transmission Date: 20210419
  Serious: Yes (Hospitalization, Other)
  Sender: FDA-Public Use
  Company Number: GB-PFIZER INC-2021004946

PATIENT
  Age: 73 Year
  Sex: Female

DRUGS (21)
  1. CO?BENELDOPA [Concomitant]
     Active Substance: BENSERAZIDE HYDROCHLORIDE\LEVODOPA
     Dosage: 8 DOSAGE FORM, QD (25/100)
  2. CIPROFLOXACIN. [Concomitant]
     Active Substance: CIPROFLOXACIN
     Dosage: 1500 MILLIGRAM, QD (750MG BD PO/IV DURING ADMISSION)
     Route: 048
  3. PARACETAMOL [Concomitant]
     Active Substance: ACETAMINOPHEN
     Dosage: 4 GRAM, QD
  4. PREGABALIN. [Concomitant]
     Active Substance: PREGABALIN
     Dosage: 50MG OM
  5. TEMOCILLIN [Concomitant]
     Active Substance: TEMOCILLIN
     Dosage: 4 GRAM, QD
     Route: 042
     Dates: start: 20200727, end: 20200728
  6. PREGABALIN. [Suspect]
     Active Substance: PREGABALIN
     Dosage: 75 MG, 1X/DAY
  7. ADCAL D3 [Concomitant]
     Active Substance: CALCIUM CARBONATE\CHOLECALCIFEROL
     Dosage: 2 DOSAGE FORM, QD (1.5G/400UNITS,TUTTI FRUTTI (PROSTRAKAN LTD))
  8. GENTAMICIN. [Concomitant]
     Active Substance: GENTAMICIN
     Dosage: 260 MILLIGRAM, QD
     Route: 042
     Dates: start: 20200726, end: 20200730
  9. MACROGOL [Concomitant]
     Active Substance: POLYETHYLENE GLYCOLS
     Dosage: 2 DOSAGE FORM, QD
     Route: 048
  10. MEROPENEM. [Suspect]
     Active Substance: MEROPENEM
     Indication: ENTEROBACTER BACTERAEMIA
     Dosage: 2 G, 3X/DAY (2 GRAM, Q8H)
     Route: 042
     Dates: start: 20200731
  11. SERTRALINE [Concomitant]
     Active Substance: SERTRALINE HYDROCHLORIDE
     Dosage: 1 DOSAGE FORM, QD (50MG ON)
  12. CIPROFLOXACIN. [Concomitant]
     Active Substance: CIPROFLOXACIN
     Dosage: COURSES OF 400MG TWICE DAILY IV AND 750MG TWICE DAILY IV DURING ADMISSION
     Route: 042
  13. DALTEPARIN [Concomitant]
     Active Substance: DALTEPARIN
     Dosage: 5000 INTERNATIONAL UNIT, QD
     Route: 058
  14. CO?CARELDOPA [Concomitant]
     Active Substance: CARBIDOPA\LEVODOPA
     Dosage: 8 DOSAGE FORM, QD (25/100)
  15. PREGABALIN. [Concomitant]
     Active Substance: PREGABALIN
     Dosage: 75MG ON
  16. SERTRALINE [Concomitant]
     Active Substance: SERTRALINE HYDROCHLORIDE
     Dosage: 100MG OM
  17. TAZOCIN [Concomitant]
     Active Substance: PIPERACILLIN SODIUM\TAZOBACTAM SODIUM
     Dosage: 4.5 G, 3X/DAY (4.5 GRAM, Q8H)
     Route: 042
     Dates: start: 20200725, end: 20200731
  18. MEBEVERINE [Concomitant]
     Active Substance: MEBEVERINE
     Dosage: 405 MILLIGRAM, QD
     Route: 048
  19. OXYCODONE [Concomitant]
     Active Substance: OXYCODONE
     Dosage: 20 MILLIGRAM, QD
     Route: 048
  20. TEICOPLANIN [Concomitant]
     Active Substance: TEICOPLANIN
     Dosage: 1200 MILLIGRAM, QD (600MG BD FOR 2/7, THEN 600MG OD)
     Route: 042
     Dates: start: 20200901, end: 20200902
  21. TEICOPLANIN [Concomitant]
     Active Substance: TEICOPLANIN
     Dosage: 600MG BD FOR 2/7, THEN 600MG OD
     Route: 042
     Dates: start: 20200903, end: 20200908

REACTIONS (2)
  - Thrombocytosis [Recovered/Resolved]
  - Condition aggravated [Unknown]
